FAERS Safety Report 17466964 (Version 3)
Quarter: 2021Q2

REPORT INFORMATION
  Report Type: Report from Study
  Country: None (occurrence: US)
  Receive Date: 20200227
  Receipt Date: 20210609
  Transmission Date: 20210716
  Serious: Yes (Other)
  Sender: FDA-Public Use
  Company Number: US-ABBVIE-20K-163-3292029-00

PATIENT
  Age: 54 Year
  Sex: Male

DRUGS (2)
  1. HUMIRA [Suspect]
     Active Substance: ADALIMUMAB
     Route: 058
  2. HUMIRA [Suspect]
     Active Substance: ADALIMUMAB
     Indication: ANKYLOSING SPONDYLITIS
     Route: 058

REACTIONS (6)
  - Epilepsy [Unknown]
  - Back pain [Not Recovered/Not Resolved]
  - Headache [Unknown]
  - Back disorder [Unknown]
  - Migraine [Unknown]
  - Hypoacusis [Unknown]

NARRATIVE: CASE EVENT DATE: 20210604
